FAERS Safety Report 7397894-7 (Version None)
Quarter: 2011Q2

REPORT INFORMATION
  Report Type: 
  Country: None (occurrence: None)
  Receive Date: 20110406
  Receipt Date: 20110329
  Transmission Date: 20111010
  Serious: Yes (Other)
  Sender: FDA-Public Use
  Company Number: SE-BAXTER-2011BH008274

PATIENT
  Sex: Male

DRUGS (1)
  1. GAMMAGARD S/D [Suspect]
     Indication: IMMUNODEFICIENCY COMMON VARIABLE
     Route: 042
     Dates: start: 20110301

REACTIONS (7)
  - ELECTROCARDIOGRAM ABNORMAL [None]
  - BLOOD PRESSURE INCREASED [None]
  - CHILLS [None]
  - BACK PAIN [None]
  - CHEST DISCOMFORT [None]
  - PAIN IN EXTREMITY [None]
  - ABDOMINAL PAIN [None]
